FAERS Safety Report 8495563-3 (Version None)
Quarter: 2012Q3

REPORT INFORMATION
  Report Type: 
  Country: None (occurrence: None)
  Receive Date: 20120709
  Receipt Date: 20120620
  Transmission Date: 20120928
  Serious: Yes (Hospitalization, Other)
  Sender: FDA-Public Use
  Company Number: BR-ABBOTT-12P-020-0948460-00

PATIENT
  Sex: Male
  Weight: 60 kg

DRUGS (6)
  1. OMEPRAZOLE [Concomitant]
     Indication: GASTRIC DISORDER
     Route: 048
     Dates: start: 20100101
  2. ISONIAZID [Concomitant]
     Indication: PRODUCT USED FOR UNKNOWN INDICATION
     Route: 048
     Dates: start: 20120201
  3. LOSARTAN POTASSIUM [Concomitant]
     Indication: HYPERTENSION
     Route: 048
  4. PROPRANOLOL [Concomitant]
     Indication: HYPERTENSION
     Route: 048
  5. HUMIRA [Suspect]
     Indication: ANKYLOSING SPONDYLITIS
     Route: 058
     Dates: start: 20120606
  6. OMEPRAZOLE [Concomitant]
     Indication: PROPHYLAXIS

REACTIONS (3)
  - ABDOMINAL DISCOMFORT [None]
  - FEMUR FRACTURE [None]
  - VOMITING [None]
